FAERS Safety Report 4724390-5 (Version None)
Quarter: 2005Q3

REPORT INFORMATION
  Report Type: 
  Country: None (occurrence: None)
  Receive Date: 20050721
  Receipt Date: 20050714
  Transmission Date: 20060218
  Serious: Yes (Other)
  Sender: FDA-Public Use
  Company Number: GBWYE796104JUL05

PATIENT
  Age: 29 Year
  Sex: Female

DRUGS (7)
  1. EFFEXOR [Suspect]
     Indication: DEPRESSION
     Dosage: SEE IMAGE
     Dates: start: 20041122, end: 20050508
  2. EFFEXOR [Suspect]
     Indication: DEPRESSION
     Dosage: SEE IMAGE
     Dates: start: 20050509
  3. EFFEXOR XR [Suspect]
     Indication: DEPRESSION
     Dosage: 75 MG 1X PER 1 DAY
     Dates: start: 20020320, end: 20041121
  4. ANUSOL (BISMUTH HYDROXIDE/BISMUTH SUBGALLATE/BORIC ACID/PERUVIAN BALSA [Concomitant]
  5. LACTULOSE [Concomitant]
  6. ACETAMINOPHEN W/ CODEINE [Concomitant]
  7. TEMAZEPAM [Concomitant]

REACTIONS (3)
  - CAESAREAN SECTION [None]
  - DRUG EXPOSURE DURING PREGNANCY [None]
  - MATERNAL DISTRESS DURING LABOUR [None]
